FAERS Safety Report 7322322-7 (Version None)
Quarter: 2011Q1

REPORT INFORMATION
  Report Type: 
  Country: None (occurrence: None)
  Receive Date: 20110301
  Receipt Date: 20110217
  Transmission Date: 20110831
  Serious: No
  Sender: FDA-Public Use
  Company Number: US-BIOGENIDEC-2011BI006640

PATIENT
  Age: 63 Year
  Sex: Female

DRUGS (4)
  1. AVONEX [Concomitant]
     Indication: MULTIPLE SCLEROSIS
     Route: 030
     Dates: start: 20061106
  2. AVONEX [Concomitant]
     Route: 030
     Dates: start: 19981201, end: 20060515
  3. STEROID [Concomitant]
  4. TYSABRI [Suspect]
     Indication: MULTIPLE SCLEROSIS
     Route: 042
     Dates: start: 20100528

REACTIONS (2)
  - DIZZINESS [None]
  - STEROID THERAPY [None]
